FAERS Safety Report 9648781 (Version 1)
Quarter: 2013Q4

REPORT INFORMATION
  Report Type: Spontaneous
  Country: PL (occurrence: PL)
  Receive Date: 20131028
  Receipt Date: 20131028
  Transmission Date: 20140711
  Serious: Yes (Death, Life-Threatening, Hospitalization)
  Sender: FDA-Public Use
  Company Number: PL-ASTRAZENECA-2013SE78817

PATIENT
  Age: 36 Year
  Sex: Male

DRUGS (4)
  1. QUETIAPINE [Suspect]
     Route: 048
  2. CLONAZEPAM [Suspect]
  3. SERTALINE HC1 TABLETS/ MFR UNKNOWN [Suspect]
  4. INSULIN [Suspect]

REACTIONS (7)
  - Completed suicide [Fatal]
  - Brain death [Fatal]
  - Blood glucose decreased [Unknown]
  - Loss of consciousness [Unknown]
  - Respiratory disorder [Unknown]
  - Mydriasis [Unknown]
  - Pupillary reflex impaired [Unknown]
